FAERS Safety Report 19585767 (Version 1)
Quarter: 2021Q3

REPORT INFORMATION
  Report Type: Spontaneous
  Country: GB (occurrence: GB)
  Receive Date: 20210721
  Receipt Date: 20210721
  Transmission Date: 20211014
  Serious: Yes (Hospitalization, Other)
  Sender: FDA-Public Use
  Company Number: GB-LUPIN PHARMACEUTICALS INC.-2021-12425

PATIENT
  Age: 61 Year
  Sex: Male

DRUGS (3)
  1. HEPARIN [Suspect]
     Active Substance: HEPARIN SODIUM
     Indication: ANTICOAGULANT THERAPY
     Dosage: UNK, RECEIVED HEPARIN SOLUTION IN THE FORM OF A BOLUS DOSE AT CANNULATION, FOLLOWED BY INFUSION OF H
     Route: 042
  2. HEPARIN [Suspect]
     Active Substance: HEPARIN SODIUM
     Dosage: UNK, RECEIVED HEPARIN SOLUTION IN THE FORM OF A BOLUS DOSE AT CANNULATION, FOLLOWED BY INFUSION OF H
     Route: 042
  3. CEFTRIAXONE. [Suspect]
     Active Substance: CEFTRIAXONE
     Indication: PRODUCT USED FOR UNKNOWN INDICATION
     Dosage: UNK
     Route: 065

REACTIONS (5)
  - Haemorrhage [Unknown]
  - Thrombocytopenia [Unknown]
  - Thrombosis [Unknown]
  - Hepatic infarction [Unknown]
  - Splenic infarction [Unknown]
